FAERS Safety Report 17000875 (Version 2)
Quarter: 2019Q4

REPORT INFORMATION
  Report Type: Spontaneous
  Country: JP (occurrence: JP)
  Receive Date: 20191106
  Receipt Date: 20191120
  Transmission Date: 20200122
  Serious: Yes (Death, Hospitalization, Other)
  Sender: FDA-Public Use
  Company Number: JP-BRISTOL-MYERS SQUIBB COMPANY-BMS-2019-106628

PATIENT
  Age: 82 Year
  Sex: Female
  Weight: 37 kg

DRUGS (1)
  1. NIVOLUMAB [Suspect]
     Active Substance: NIVOLUMAB
     Indication: NON-SMALL CELL LUNG CANCER
     Dosage: 3 MILLIGRAM/KILOGRAM, Q2WK
     Route: 042

REACTIONS (7)
  - Cholangitis sclerosing [None]
  - Inappropriate antidiuretic hormone secretion [None]
  - Malignant neoplasm progression [Fatal]
  - Rash [None]
  - Urinary tract infection [None]
  - Cholangitis [Recovering/Resolving]
  - Lymphadenopathy [None]

NARRATIVE: CASE EVENT DATE: 20170624
